FAERS Safety Report 15014848 (Version 1)
Quarter: 2018Q2

REPORT INFORMATION
  Report Type: Spontaneous
  Country: US (occurrence: US)
  Receive Date: 20180530
  Receipt Date: 20180530
  Transmission Date: 20180711
  Serious: Yes (Life-Threatening)
  Sender: FDA-Public Use
  Company Number: None

PATIENT
  Age: 53 Year
  Sex: Female
  Weight: 87.75 kg

DRUGS (7)
  1. LEVOTHYROXINE. [Concomitant]
     Active Substance: LEVOTHYROXINE
  2. TIZANIDINE 4MG [Suspect]
     Active Substance: TIZANIDINE
     Indication: PAIN
     Dosage: ?          QUANTITY:2 TABLET(S);?
     Route: 048
     Dates: start: 20180424, end: 20180517
  3. VITAMIN B12 [Concomitant]
     Active Substance: CYANOCOBALAMIN
  4. VITAMIN D3 [Concomitant]
     Active Substance: CHOLECALCIFEROL
  5. MULTIVITAMIN [Concomitant]
     Active Substance: VITAMINS
  6. LITHIUM. [Concomitant]
     Active Substance: LITHIUM
  7. BUPROPION. [Concomitant]
     Active Substance: BUPROPION

REACTIONS (4)
  - Dyspnoea [None]
  - Syncope [None]
  - Feeling drunk [None]
  - Blood pressure decreased [None]

NARRATIVE: CASE EVENT DATE: 20180504
